FAERS Safety Report 17560710 (Version 7)
Quarter: 2022Q2

REPORT INFORMATION
  Report Type: Report from Study
  Country: MX (occurrence: MX)
  Receive Date: 20200319
  Receipt Date: 20220509
  Transmission Date: 20220721
  Serious: Yes (Other)
  Sender: FDA-Public Use
  Company Number: MX-SAARTEMIS-SAC202002100074

PATIENT
  Age: 37 Year
  Sex: Female
  Weight: 74 kg

DRUGS (4)
  1. ALEMTUZUMAB [Suspect]
     Active Substance: ALEMTUZUMAB
     Dosage: UNK
     Route: 042
     Dates: start: 20200109
  2. LEVOTHYROXINE SODIUM [Concomitant]
     Active Substance: LEVOTHYROXINE SODIUM
     Indication: Thyroid disorder
  3. AMITRIPTYLINE HYDROCHLORIDE [Concomitant]
     Active Substance: AMITRIPTYLINE HYDROCHLORIDE
     Indication: Urinary tract disorder
     Route: 065
  4. NUVIGIL [Concomitant]
     Active Substance: ARMODAFINIL

REACTIONS (14)
  - Immunodeficiency [Not Recovered/Not Resolved]
  - Hypothyroidism [Not Recovered/Not Resolved]
  - Thyroxine abnormal [Not Recovered/Not Resolved]
  - Blood thyroid stimulating hormone increased [Not Recovered/Not Resolved]
  - Urinary tract infection [Unknown]
  - Micturition urgency [Unknown]
  - Pollakiuria [Unknown]
  - Vessel puncture site inflammation [Recovering/Resolving]
  - Vessel puncture site pain [Recovering/Resolving]
  - Vessel puncture site haematoma [Recovering/Resolving]
  - Menstruation irregular [Unknown]
  - Urinary tract disorder [Unknown]
  - Asthenia [Recovering/Resolving]
  - Thyroid disorder [Unknown]

NARRATIVE: CASE EVENT DATE: 20200201
